FAERS Safety Report 4317936-2 (Version None)
Quarter: 2004Q1

REPORT INFORMATION
  Report Type: 
  Country: None (occurrence: None)
  Receive Date: 20040316
  Receipt Date: 20040109
  Transmission Date: 20041129
  Serious: Yes (Hospitalization, Other)
  Sender: FDA-Public Use
  Company Number: US-GLAXOSMITHKLINE-A0493122A

PATIENT
  Age: 25 Year
  Sex: Male
  Weight: 68.2 kg

DRUGS (3)
  1. WELLBUTRIN [Suspect]
     Indication: DEPRESSION
     Dosage: 150MG SEE DOSAGE TEXT
     Route: 048
     Dates: start: 20031205, end: 20031227
  2. CLOMIPRAMINE HCL [Concomitant]
     Dosage: 150MG AT NIGHT
  3. SEROQUEL [Concomitant]
     Dosage: 25MG AT NIGHT
     Route: 048

REACTIONS (6)
  - AMNESIA [None]
  - CONCUSSION [None]
  - FALL [None]
  - GRAND MAL CONVULSION [None]
  - MEDICATION ERROR [None]
  - SKULL FRACTURE [None]
